FAERS Safety Report 16618513 (Version 1)
Quarter: 2019Q3

REPORT INFORMATION
  Report Type: Spontaneous
  Country: DE (occurrence: DE)
  Receive Date: 20190723
  Receipt Date: 20190723
  Transmission Date: 20191004
  Serious: Yes (Disabling, Congenital Anomaly, Other)
  Sender: FDA-Public Use
  Company Number: DE-SA-2019SA191279

PATIENT
  Age: 0 Day
  Sex: Male

DRUGS (3)
  1. HUMINSULIN BASAL (NPH) [Concomitant]
     Indication: GESTATIONAL DIABETES
     Dosage: 20 IU (IN EVENING)
     Route: 064
  2. SALBUTAMOL [Concomitant]
     Active Substance: ALBUTEROL
     Dosage: MOTHER TOOK SALBUTAMOL AS AN EMERGENCY SPRAY AT A MAXIMUM OF 2X DURING PREGNANCY
     Route: 064
  3. CLEXANE [Suspect]
     Active Substance: ENOXAPARIN SODIUM
     Indication: THROMBOSIS PROPHYLAXIS
     Dosage: 8000 IU, QD (80 MG/0.8 ML)
     Route: 064

REACTIONS (3)
  - Urinary tract obstruction [Not Recovered/Not Resolved]
  - Congenital megaureter [Not Recovered/Not Resolved]
  - Foetal exposure during pregnancy [Unknown]

NARRATIVE: CASE EVENT DATE: 20190214
